FAERS Safety Report 12376767 (Version 2)
Quarter: 2016Q2

REPORT INFORMATION
  Report Type: Report from Study
  Country: US (occurrence: US)
  Receive Date: 20160517
  Receipt Date: 20160517
  Transmission Date: 20160815
  Serious: No
  Sender: FDA-Public Use
  Company Number: US-MALLINCKRODT-T201503072

PATIENT
  Sex: Female

DRUGS (2)
  1. REPOSITORY CORTICOTROPIN INJECTION [Suspect]
     Active Substance: CORTICOTROPIN
     Indication: PROTEINURIA
     Dosage: 40 UNITS TWICE A WEEK
     Route: 058
     Dates: start: 20150602, end: 20150612
  2. REPOSITORY CORTICOTROPIN INJECTION [Suspect]
     Active Substance: CORTICOTROPIN
     Indication: NEPHROTIC SYNDROME

REACTIONS (15)
  - Asthma [Unknown]
  - Skin exfoliation [Unknown]
  - Feeling hot [Unknown]
  - Blood glucose fluctuation [Unknown]
  - Pollakiuria [Unknown]
  - Eye pruritus [Recovered/Resolved]
  - Insomnia [Unknown]
  - Chest pain [Recovered/Resolved]
  - Increased appetite [Unknown]
  - Eye irritation [Recovered/Resolved]
  - Periorbital oedema [Unknown]
  - Contusion [Unknown]
  - Kidney infection [Unknown]
  - Localised oedema [Unknown]
  - Oedema peripheral [Unknown]
